FAERS Safety Report 8073188-1 (Version None)
Quarter: 2012Q1

REPORT INFORMATION
  Report Type: 
  Country: None (occurrence: None)
  Receive Date: 20120126
  Receipt Date: 20120113
  Transmission Date: 20120608
  Serious: Yes (Hospitalization)
  Sender: FDA-Public Use
  Company Number: US-ELI_LILLY_AND_COMPANY-US201108006643

PATIENT
  Age: 61 Year
  Sex: Female

DRUGS (4)
  1. VANCOMYCIN [Concomitant]
  2. CALCIUM [Concomitant]
  3. FORTEO [Suspect]
     Dosage: 20 UG, QD
  4. FORTEO [Suspect]
     Indication: OSTEOPOROSIS
     Dosage: 20 UG, QD
     Dates: start: 20110501

REACTIONS (6)
  - HYPOTENSION [None]
  - CONFUSIONAL STATE [None]
  - INCOHERENT [None]
  - PYREXIA [None]
  - RESPIRATORY TRACT INFECTION [None]
  - ACCIDENTAL OVERDOSE [None]
